FAERS Safety Report 8827553 (Version 1)
Quarter: 2012Q4

REPORT INFORMATION
  Report Type: 
  Country: ES (occurrence: ES)
  Receive Date: 20121005
  Receipt Date: 20121005
  Transmission Date: 20130627
  Serious: Yes (Other)
  Sender: FDA-Public Use
  Company Number: ES-ASTRAZENECA-2012SE69812

PATIENT
  Age: 22413 Day
  Sex: Male
  Weight: 87.5 kg

DRUGS (4)
  1. SYMBICORT [Suspect]
     Dosage: 320/9 two times daily
     Route: 055
     Dates: start: 2009
  2. SYMBICORT [Suspect]
     Dosage: 320/9 as required
     Route: 055
     Dates: start: 2009
  3. PERMIXON [Concomitant]
     Indication: PROSTATIC DISORDER
     Route: 048
     Dates: start: 2009
  4. PREDNISONA [Concomitant]

REACTIONS (5)
  - Dysgeusia [Recovered/Resolved]
  - Chest discomfort [Recovered/Resolved]
  - Muscle fatigue [Recovered/Resolved]
  - Tachycardia [Recovered/Resolved]
  - Dizziness [Recovered/Resolved]
